FAERS Safety Report 8434043-8 (Version None)
Quarter: 2012Q2

REPORT INFORMATION
  Report Type: 
  Country: None (occurrence: None)
  Receive Date: 20120613
  Receipt Date: 20120530
  Transmission Date: 20120825
  Serious: No
  Sender: FDA-Public Use
  Company Number: US-BAYER-2012-055088

PATIENT
  Age: 22 Year
  Sex: Female
  Weight: 58.912 kg

DRUGS (1)
  1. ALEVE (CAPLET) [Suspect]
     Indication: PAIN
     Dosage: 2 DF, QD
     Route: 048
     Dates: start: 20120529

REACTIONS (3)
  - PYREXIA [None]
  - CHOKING SENSATION [None]
  - DEHYDRATION [None]
